FAERS Safety Report 6425209-7 (Version None)
Quarter: 2009Q4

REPORT INFORMATION
  Report Type: 
  Country: None (occurrence: None)
  Receive Date: 20091103
  Receipt Date: 20091029
  Transmission Date: 20100525
  Serious: Yes (Life-Threatening, Hospitalization)
  Sender: FDA-Public Use
  Company Number: JP-BRISTOL-MYERS SQUIBB COMPANY-14763965

PATIENT
  Age: 69 Year
  Sex: Male

DRUGS (3)
  1. IRBESARTAN [Suspect]
     Indication: ESSENTIAL HYPERTENSION
     Dosage: TAKEN FROM 02JUL09-20AUG09 AS CONMED SUPECT: 21AUG2009 TAKEN 100MG
     Route: 048
     Dates: start: 20090821, end: 20090827
  2. BLINDED: AMLODIN [Suspect]
     Indication: ESSENTIAL HYPERTENSION
     Dosage: STARTED JAN09 ALSO TAKEN ON 21AUG09
     Dates: start: 20030101
  3. BLINDED: PLACEBO [Suspect]
     Indication: ESSENTIAL HYPERTENSION
     Dosage: TAKEN FROM 02JUL09-20AUG09 AS CONMED
     Route: 048
     Dates: start: 20090821

REACTIONS (1)
  - AORTIC DISSECTION [None]
